FAERS Safety Report 9628299 (Version 2)
Quarter: 2014Q1

REPORT INFORMATION
  Report Type: Spontaneous
  Country: KR (occurrence: KR)
  Receive Date: 20131017
  Receipt Date: 20140120
  Transmission Date: 20141002
  Serious: Yes (Life-Threatening, Hospitalization)
  Sender: FDA-Public Use
  Company Number: KR-BRISTOL-MYERS SQUIBB COMPANY-19510940

PATIENT
  Age: 70 Year
  Sex: Male

DRUGS (10)
  1. BYETTA PEN DISPOSABLE [Suspect]
     Indication: TYPE 2 DIABETES MELLITUS
     Route: 058
     Dates: start: 20121019, end: 20131002
  2. ALDACTONE [Concomitant]
  3. DITHIAZIDE [Concomitant]
  4. AMLODIPINE [Concomitant]
  5. SERETIDE [Concomitant]
  6. PULMICORT [Concomitant]
  7. METFORMIN [Concomitant]
     Route: 048
     Dates: start: 20121011
  8. GLICLAZIDE [Concomitant]
     Route: 048
     Dates: start: 20130704
  9. SERETIDE [Concomitant]
     Dates: start: 20090430
  10. PULMICORT [Concomitant]
     Dates: start: 20090430

REACTIONS (1)
  - Pancreatic carcinoma [Not Recovered/Not Resolved]
